FAERS Safety Report 5289672-X (Version None)
Quarter: 2007Q2

REPORT INFORMATION
  Report Type: 
  Country: None (occurrence: None)
  Receive Date: 20070406
  Receipt Date: 20070402
  Transmission Date: 20071010
  Serious: Yes (Hospitalization)
  Sender: FDA-Public Use
  Company Number: FR-AVENTIS-200710996FR

PATIENT
  Age: 43 Year
  Sex: Male
  Weight: 47 kg

DRUGS (6)
  1. TAXOTERE [Suspect]
     Indication: EPIGLOTTIC CARCINOMA
     Route: 042
     Dates: start: 20070212, end: 20070212
  2. CARBOPLATIN [Suspect]
     Indication: EPIGLOTTIC CARCINOMA
     Route: 042
     Dates: start: 20070212, end: 20070212
  3. FLUOROURACIL [Suspect]
     Indication: EPIGLOTTIC CARCINOMA
     Route: 042
     Dates: start: 20070212, end: 20070212
  4. TRUVADA [Concomitant]
     Indication: HIV TEST POSITIVE
  5. REYATAZ [Concomitant]
     Indication: HIV TEST POSITIVE
  6. NORVIR [Concomitant]
     Indication: HIV TEST POSITIVE

REACTIONS (3)
  - BONE MARROW FAILURE [None]
  - ERYTHEMA [None]
  - VISUAL ACUITY REDUCED [None]
